FAERS Safety Report 6333293-4 (Version None)
Quarter: 2009Q3

REPORT INFORMATION
  Report Type: 
  Country: None (occurrence: None)
  Receive Date: 20090826
  Receipt Date: 20090803
  Transmission Date: 20100115
  Serious: Yes (Hospitalization)
  Sender: FDA-Public Use
  Company Number: 2009-198253-NL

PATIENT
  Age: 24 Year
  Sex: Female
  Weight: 77.1115 kg

DRUGS (5)
  1. NUVARING [Suspect]
     Indication: CONTRACEPTION
     Dates: start: 20070301, end: 20070501
  2. EX-LAX [Concomitant]
  3. ADVIL [Concomitant]
  4. ORTHO TRI-CYCLEN [Concomitant]
  5. YASMIN [Concomitant]

REACTIONS (2)
  - DEEP VEIN THROMBOSIS [None]
  - TENDONITIS [None]
